FAERS Safety Report 6703587-9 (Version None)
Quarter: 2010Q2

REPORT INFORMATION
  Report Type: 
  Country: None (occurrence: None)
  Receive Date: 20100430
  Receipt Date: 20100426
  Transmission Date: 20101027
  Serious: Yes (Life-Threatening, Disabling, Other)
  Sender: FDA-Public Use
  Company Number: PHHY2010GB15659

PATIENT
  Sex: Male

DRUGS (5)
  1. CLOZARIL [Suspect]
     Indication: SCHIZOPHRENIA
     Dosage: 675 MG / DAY
     Dates: start: 20081217, end: 20100311
  2. HYOSCINE [Concomitant]
     Indication: SALIVARY HYPERSECRETION
     Dosage: 300 UG, QD
     Route: 048
     Dates: start: 20100115, end: 20100311
  3. ARIPIPRAZOLE [Concomitant]
     Indication: SCHIZOPHRENIA
     Dosage: 5 MG, QD
     Route: 048
     Dates: start: 20091001, end: 20100311
  4. GAVISCON [Concomitant]
     Indication: DYSPEPSIA
     Dosage: 10 ML, BID
     Route: 048
     Dates: start: 20100209
  5. RAMIPRIL [Concomitant]
     Indication: HYPERTENSION
     Dosage: 10 MG, QD
     Route: 048
     Dates: start: 20091201

REACTIONS (4)
  - HYPERTENSION [None]
  - LEFT VENTRICULAR HYPERTROPHY [None]
  - SALIVARY HYPERSECRETION [None]
  - VENTRICULAR DYSFUNCTION [None]
